FAERS Safety Report 17033250 (Version 1)
Quarter: 2019Q4

REPORT INFORMATION
  Report Type: Spontaneous
  Country: GB (occurrence: GB)
  Receive Date: 20191114
  Receipt Date: 20191114
  Transmission Date: 20200122
  Serious: Yes (Other)
  Sender: FDA-Public Use
  Company Number: GB-NAPPMUNDI-GBR-2019-0072512

PATIENT
  Age: 32 Year
  Sex: Female
  Weight: 94 kg

DRUGS (11)
  1. DESOGESTREL [Concomitant]
     Active Substance: DESOGESTREL
     Dosage: 1 DF, DAILY
     Dates: start: 20140122
  2. CETIRIZINE [Concomitant]
     Active Substance: CETIRIZINE HYDROCHLORIDE
     Dosage: 1 DF, DAILY (FOR REACTION TO PATCH)
     Dates: start: 20171108, end: 20171208
  3. MST CONTINUS [Concomitant]
     Active Substance: MORPHINE SULFATE
     Dosage: 1 DF, Q12H
     Dates: start: 20171114, end: 20171114
  4. ZOMORPH [Concomitant]
     Active Substance: MORPHINE SULFATE
     Dosage: 1 DF, Q12H
     Dates: start: 20171114, end: 20171214
  5. NAPROXEN. [Concomitant]
     Active Substance: NAPROXEN
     Dosage: 2 DF, DAILY
     Dates: start: 20170816
  6. ORAMORPH [Concomitant]
     Active Substance: MORPHINE SULFATE
     Dosage: 2.5 ML, UNK (MAX EVERY 2 HRS)
     Dates: start: 20171114, end: 20171212
  7. HYDROXOCOBALAMIN [Concomitant]
     Active Substance: HYDROXOCOBALAMIN
     Dosage: SIX LOADING DOSES OVER 2 WEEKS. THEN RECHECK BL...
     Dates: start: 20171027
  8. BUTEC [Concomitant]
     Active Substance: BUPRENORPHINE
     Dosage: 1 DF, UNK (AS DIRECTED)
     Dates: start: 20171031, end: 20171114
  9. PREGABALIN. [Concomitant]
     Active Substance: PREGABALIN
     Dosage: 3 DF, DAILY
     Dates: start: 20170821
  10. BUPRENORPHINE. [Suspect]
     Active Substance: BUPRENORPHINE
     Indication: PRODUCT USED FOR UNKNOWN INDICATION
     Dosage: UNK
     Route: 065
     Dates: start: 20170915
  11. OTOMIZE [Concomitant]
     Active Substance: DEXAMETHASONE\NEOMYCIN SULFATE
     Dosage: 3 DF, DAILY
     Dates: start: 20171213, end: 20171220

REACTIONS (3)
  - Dermatitis [Not Recovered/Not Resolved]
  - Pruritus [Not Recovered/Not Resolved]
  - Dermatitis allergic [Recovered/Resolved]

NARRATIVE: CASE EVENT DATE: 20180107
